FAERS Safety Report 9468022 (Version 3)
Quarter: 2014Q2

REPORT INFORMATION
  Report Type: Spontaneous
  Country: CA (occurrence: CA)
  Receive Date: 20130821
  Receipt Date: 20140610
  Transmission Date: 20141212
  Serious: Yes (Other)
  Sender: FDA-Public Use
  Company Number: CA-PFIZER INC-2013238939

PATIENT
  Age: 42 Year
  Sex: Female
  Weight: 96.6 kg

DRUGS (2)
  1. CYKLOKAPRON [Suspect]
     Indication: MENORRHAGIA
     Dosage: 500 MG, 3X/DAY
     Dates: start: 20130809, end: 20130812
  2. THYROID [Concomitant]
     Indication: HYPOTHYROIDISM
     Dosage: 30 MG, 3X/DAY
     Dates: start: 2009

REACTIONS (7)
  - Convulsion [Recovered/Resolved]
  - Somnambulism [Recovered/Resolved]
  - Tongue injury [Not Recovered/Not Resolved]
  - Infective glossitis [Not Recovered/Not Resolved]
  - Pain [Recovered/Resolved]
  - Balance disorder [Recovered/Resolved]
  - Head discomfort [Recovered/Resolved]
